FAERS Safety Report 9365832 (Version 1)
Quarter: 2013Q2

REPORT INFORMATION
  Report Type: Spontaneous
  Country: BR (occurrence: BR)
  Receive Date: 20130625
  Receipt Date: 20130625
  Transmission Date: 20140414
  Serious: Yes (Hospitalization, Other)
  Sender: FDA-Public Use
  Company Number: PHHY2013BR064031

PATIENT
  Sex: Male

DRUGS (11)
  1. EXELON PATCH [Suspect]
     Indication: DEMENTIA ALZHEIMER^S TYPE
     Dosage: 4.6 MG, DAILY
     Route: 062
  2. EXELON PATCH [Suspect]
     Dosage: 9.5 MG, UNK
     Route: 062
  3. ZYPREXA [Suspect]
     Dosage: UNK UKN, UNK
  4. EBIXA [Suspect]
     Dosage: UNK UKN, UNK
  5. ENDOFOLIN [Concomitant]
     Dosage: 1 DF, DAILY
     Route: 048
  6. PANTOZOL [Concomitant]
     Indication: GASTRIC DISORDER
     Dosage: 20 MG, DAILY
     Route: 048
  7. ARADOIS [Concomitant]
     Indication: HYPERTENSION
     Dosage: 1 DF, DAILY
     Route: 048
  8. SELOZOK [Concomitant]
     Dosage: 0.5 DF(25 MG) DAILY
     Route: 048
  9. LEXAPRO [Concomitant]
     Indication: DEPRESSION
     Dosage: 10 MG, DAILY
     Route: 048
  10. LIPITOR [Concomitant]
     Indication: EATING DISORDER
     Dosage: UNK UKN, UNK
  11. ENOXAPARIN [Concomitant]
     Indication: BEDRIDDEN
     Dosage: 1 APPLICATION DAILY
     Route: 023
     Dates: start: 201304

REACTIONS (11)
  - Femur fracture [Recovered/Resolved]
  - Skin fissures [Recovered/Resolved]
  - Urinary tract infection [Unknown]
  - Fall [Recovered/Resolved]
  - Poisoning [Recovered/Resolved]
  - Depression [Not Recovered/Not Resolved]
  - Fear [Not Recovered/Not Resolved]
  - Insomnia [Recovered/Resolved]
  - Movement disorder [Not Recovered/Not Resolved]
  - Muscle spasms [Not Recovered/Not Resolved]
  - Nausea [Recovered/Resolved]
